FAERS Safety Report 23013538 (Version 1)
Quarter: 2023Q4

REPORT INFORMATION
  Report Type: Spontaneous
  Country: US (occurrence: US)
  Receive Date: 20231001
  Receipt Date: 20231001
  Transmission Date: 20240109
  Serious: No
  Sender: FDA-Public Use
  Company Number: US-BIOGEN-2023BI01228689

PATIENT
  Sex: Female

DRUGS (2)
  1. TECFIDERA [Suspect]
     Active Substance: DIMETHYL FUMARATE
     Indication: Multiple sclerosis
     Dosage: TAKE 1 CAPSULE BY MOUTH TWICE A DAY
     Route: 050
  2. VITAMIN D [Concomitant]
     Active Substance: VITAMIN D NOS
     Route: 050

REACTIONS (1)
  - Gait disturbance [Unknown]
